FAERS Safety Report 13190058 (Version 1)
Quarter: 2017Q1

REPORT INFORMATION
  Report Type: Spontaneous
  Country: NO (occurrence: NO)
  Receive Date: 20170206
  Receipt Date: 20170206
  Transmission Date: 20170428
  Serious: Yes (Hospitalization, Other)
  Sender: FDA-Public Use
  Company Number: NO-PFIZER INC-2016278689

PATIENT
  Age: 64 Year
  Sex: Male

DRUGS (4)
  1. SOMAC [Suspect]
     Active Substance: PANTOPRAZOLE SODIUM
     Indication: GASTROOESOPHAGEAL REFLUX DISEASE
     Dosage: 1 DF, 1X/DAY (20-40 MG DAILY)
     Route: 048
  2. CALCIUM-SANDOZ /00751528/ [Concomitant]
     Dosage: 500 MG, QD
     Route: 048
  3. VITAMIN D3 [Concomitant]
     Active Substance: CHOLECALCIFEROL
     Dosage: 20 ?G, QD
     Route: 048
  4. LOPERAMID MYLAN [Concomitant]
     Active Substance: LOPERAMIDE
     Dosage: 4 MG, QD
     Route: 048

REACTIONS (2)
  - Hyperlipidaemia [Recovered/Resolved]
  - Steatohepatitis [Unknown]

NARRATIVE: CASE EVENT DATE: 201603
